FAERS Safety Report 25925950 (Version 2)
Quarter: 2025Q4

REPORT INFORMATION
  Report Type: Spontaneous
  Country: US (occurrence: US)
  Receive Date: 20251015
  Receipt Date: 20251023
  Transmission Date: 20260118
  Serious: Yes (Life-Threatening, Hospitalization)
  Sender: DR REDDYS
  Company Number: None

PATIENT
  Age: 66 Year
  Sex: Male
  Weight: 97 kg

DRUGS (6)
  1. CLARITHROMYCIN [Suspect]
     Active Substance: CLARITHROMYCIN
     Indication: Helicobacter infection
  2. MAVACAMTEN [Suspect]
     Active Substance: MAVACAMTEN
     Indication: Hypertension
  3. PANTOPRAZOLE [Concomitant]
     Active Substance: PANTOPRAZOLE
     Indication: Helicobacter infection
  4. AMOXICILLIN [Concomitant]
     Active Substance: AMOXICILLIN
     Indication: Helicobacter infection
  5. METOPROLOL [Concomitant]
     Active Substance: METOPROLOL
     Indication: Hypertension
  6. HYDROCHLOROTHIAZIDE [Concomitant]
     Active Substance: HYDROCHLOROTHIAZIDE
     Indication: Hypertension

REACTIONS (8)
  - Cardiogenic shock [Recovering/Resolving]
  - Atrial fibrillation [Unknown]
  - Lung infiltration [Unknown]
  - Drug interaction [Unknown]
  - Acute kidney injury [Unknown]
  - Ischaemic hepatitis [Unknown]
  - Thrombocytopenia [Unknown]
  - Pleural effusion [Unknown]
